FAERS Safety Report 4386585-2 (Version None)
Quarter: 2004Q2

REPORT INFORMATION
  Report Type: 
  Country: None (occurrence: None)
  Receive Date: 20040623
  Receipt Date: 20040608
  Transmission Date: 20050107
  Serious: Yes (Death, Hospitalization)
  Sender: FDA-Public Use
  Company Number: 04P-163-0251467-00

PATIENT
  Sex: Female

DRUGS (3)
  1. HUMIRA [Suspect]
     Indication: RHEUMATOID ARTHRITIS
     Dosage: 40 MG, 1 IN 2 WK, SUBCUTANEOUS
     Route: 058
     Dates: start: 20031001
  2. WARFARIN SODIUM [Concomitant]
  3. METHOTREXATE [Concomitant]

REACTIONS (3)
  - CARDIAC ARREST [None]
  - INTRACARDIAC THROMBUS [None]
  - THROMBOSIS [None]
